FAERS Safety Report 6508141-X (Version None)
Quarter: 2009Q4

REPORT INFORMATION
  Report Type: 
  Country: None (occurrence: None)
  Receive Date: 20091221
  Receipt Date: 20091211
  Transmission Date: 20100525
  Serious: Yes (Other)
  Sender: FDA-Public Use
  Company Number: US-PFIZER INC-2009219623

PATIENT
  Sex: Female
  Weight: 76.6 kg

DRUGS (11)
  1. DILANTIN [Interacting]
     Indication: EPILEPSY
     Dosage: 260MG SIX DAYS A WEEK AND 290MG ONCE A WEEK
     Route: 050
     Dates: start: 19910101
  2. PHENYTOIN [Suspect]
     Indication: CONVULSION
     Dosage: 130 MG, 2X/DAY
  3. LEVAQUIN [Interacting]
     Dosage: UNK
  4. ALTACE [Concomitant]
     Dosage: 5 MG, UNK
  5. PROVIGIL [Concomitant]
     Dosage: 400 MG, UNK
  6. NAMENDA [Concomitant]
     Dosage: 20 MG, UNK
  7. WARFARIN SODIUM [Concomitant]
  8. POTASSIUM [Concomitant]
     Dosage: 40 MG, UNK
  9. ACETYLSALICYLIC ACID [Concomitant]
  10. TOPROL-XL [Concomitant]
     Dosage: 25 MG, UNK
  11. ARICEPT [Concomitant]
     Dosage: 10 MG, UNK

REACTIONS (8)
  - ANTICONVULSANT DRUG LEVEL INCREASED [None]
  - BRAIN NEOPLASM [None]
  - CEREBROVASCULAR ACCIDENT [None]
  - DRUG INTERACTION [None]
  - DYSPHAGIA [None]
  - HYPERTENSION [None]
  - INTESTINAL OBSTRUCTION [None]
  - NEOPLASM MALIGNANT [None]
